FAERS Safety Report 15844681 (Version 2)
Quarter: 2019Q1

REPORT INFORMATION
  Report Type: Spontaneous
  Country: CA (occurrence: CA)
  Receive Date: 20190118
  Receipt Date: 20190123
  Transmission Date: 20190417
  Serious: Yes (Other)
  Sender: FDA-Public Use
  Company Number: CA-PFIZER INC-2019021003

PATIENT
  Age: 45 Year
  Sex: Male

DRUGS (8)
  1. COLISTIN [Concomitant]
     Active Substance: COLISTIN
     Indication: ACINETOBACTER BACTERAEMIA
     Dosage: 1MG/ KG = 75MG ONCE DAILY
     Route: 042
  2. NITROUS OXIDE. [Concomitant]
     Active Substance: NITROUS OXIDE
     Indication: ACUTE RESPIRATORY DISTRESS SYNDROME
     Dosage: UNK
     Route: 055
  3. MEROPENEM. [Suspect]
     Active Substance: MEROPENEM
     Indication: ACINETOBACTER INFECTION
     Dosage: UNK
  4. COLISTIN [Concomitant]
     Active Substance: COLISTIN
     Dosage: 150 MG, DAILY (INCREASED)
     Route: 042
  5. SALBUTAMOL [Concomitant]
     Active Substance: ALBUTEROL
     Indication: ACUTE RESPIRATORY DISTRESS SYNDROME
     Dosage: 2.5 MG, NEBULIZED
  6. TOBRAMYCIN. [Concomitant]
     Active Substance: TOBRAMYCIN
     Indication: ACINETOBACTER INFECTION
     Dosage: UNK
  7. COLISTIN [Concomitant]
     Active Substance: COLISTIN
     Dosage: 75 MG, 2X/DAY NEBULIZED
     Route: 055
  8. COLISTIN [Concomitant]
     Active Substance: COLISTIN
     Dosage: 150 MG, 2X/DAY (INCREASED)
     Route: 055

REACTIONS (1)
  - Rash morbilliform [Unknown]
